FAERS Safety Report 8849677 (Version 7)
Quarter: 2017Q4

REPORT INFORMATION
  Report Type: Spontaneous
  Country: US (occurrence: US)
  Receive Date: 20121019
  Receipt Date: 20171115
  Transmission Date: 20180321
  Serious: Yes (Death, Hospitalization, Disabling, Other)
  Sender: FDA-Public Use
  Company Number: US-009507513-1210USA006566

PATIENT
  Sex: Female

DRUGS (8)
  1. ALENDRONATE SODIUM. [Suspect]
     Active Substance: ALENDRONATE SODIUM
     Indication: BONE LOSS
     Dosage: UNK
     Route: 048
     Dates: end: 2009
  2. FOSAMAX [Suspect]
     Active Substance: ALENDRONATE SODIUM
     Indication: BONE LOSS
     Dosage: 70 MG, QW
     Route: 048
     Dates: end: 200910
  3. FOSAMAX [Suspect]
     Active Substance: ALENDRONATE SODIUM
     Indication: OSTEOPOROSIS PROPHYLAXIS
     Dosage: 70 MG, QD
     Route: 048
  4. FOSAMAX [Suspect]
     Active Substance: ALENDRONATE SODIUM
     Dosage: UNK
     Route: 048
  5. COMBIVENT [Concomitant]
     Active Substance: ALBUTEROL SULFATE\IPRATROPIUM BROMIDE
     Indication: ALLERGIC SINUSITIS
     Dosage: 2 PUFFS, PRN
  6. FOSAMAX [Suspect]
     Active Substance: ALENDRONATE SODIUM
     Dosage: 35 MG, QW
     Route: 048
  7. FOSAMAX [Suspect]
     Active Substance: ALENDRONATE SODIUM
     Dosage: 10 MG, QD
     Route: 048
     Dates: start: 20021003
  8. NASACORT [Concomitant]
     Active Substance: TRIAMCINOLONE ACETONIDE
     Indication: ALLERGIC SINUSITIS
     Dosage: UNK DF, PRN

REACTIONS (44)
  - Intramedullary rod insertion [Unknown]
  - Osteoarthritis [Unknown]
  - Osteopenia [Unknown]
  - Oedema peripheral [Not Recovered/Not Resolved]
  - Fall [Unknown]
  - Head injury [Unknown]
  - Inappropriate schedule of drug administration [Unknown]
  - Back pain [Unknown]
  - Injury [Unknown]
  - Dehydration [Unknown]
  - Osteoarthritis [Unknown]
  - Pain in extremity [Unknown]
  - Death [Fatal]
  - Pubis fracture [Not Recovered/Not Resolved]
  - Fall [Not Recovered/Not Resolved]
  - Osteoarthritis [Not Recovered/Not Resolved]
  - Breast tenderness [Unknown]
  - Urinary tract infection [Unknown]
  - Diabetes mellitus [Unknown]
  - Hypothyroidism [Recovered/Resolved]
  - Fall [Unknown]
  - Balance disorder [Unknown]
  - Vertigo [Unknown]
  - Chronic obstructive pulmonary disease [Not Recovered/Not Resolved]
  - Sternal fracture [Unknown]
  - Dry mouth [Unknown]
  - Hypertonic bladder [Unknown]
  - Vertebrobasilar insufficiency [Unknown]
  - Arthralgia [Unknown]
  - Vertigo [Unknown]
  - Hip fracture [Unknown]
  - Cellulitis [Recovered/Resolved]
  - Hypoacusis [Unknown]
  - Spinal compression fracture [Unknown]
  - Ankle fracture [Unknown]
  - Urinary tract infection [Unknown]
  - Kyphosis [Unknown]
  - Dizziness [Not Recovered/Not Resolved]
  - Oedema peripheral [Not Recovered/Not Resolved]
  - Femur fracture [Unknown]
  - Pneumonia [Unknown]
  - Postoperative wound infection [Recovered/Resolved]
  - Balance disorder [Unknown]
  - Chest pain [Unknown]

NARRATIVE: CASE EVENT DATE: 1999
